FAERS Safety Report 5612961-3 (Version None)
Quarter: 2008Q1

REPORT INFORMATION
  Report Type: 
  Country: None (occurrence: None)
  Receive Date: 20080204
  Receipt Date: 20080125
  Transmission Date: 20080703
  Serious: No
  Sender: FDA-Public Use
  Company Number: US-BAXTER-2008BH000478

PATIENT
  Age: 54 Year
  Sex: Male
  Weight: 84 kg

DRUGS (16)
  1. HEPARIN SODIUM [Suspect]
     Indication: CORONARY ARTERY BYPASS
     Route: 040
     Dates: start: 20080117, end: 20080117
  2. HEPARIN SODIUM [Suspect]
     Dosage: DOSE UNIT:UNITS PER KILOGRAM
     Route: 040
     Dates: start: 20080117, end: 20080117
  3. ACETYLCYSTEINE [Concomitant]
     Indication: DRUG USE FOR UNKNOWN INDICATION
     Route: 048
  4. INSULIN [Concomitant]
     Indication: DRUG USE FOR UNKNOWN INDICATION
     Dosage: DOSE UNIT:UNKNOWN
     Route: 041
  5. PRILOSEC [Concomitant]
     Indication: DRUG USE FOR UNKNOWN INDICATION
     Dosage: DOSE UNIT:UNKNOWN
     Route: 065
  6. ASPIRIN [Concomitant]
     Indication: DRUG USE FOR UNKNOWN INDICATION
     Route: 048
  7. NIFEREX [Concomitant]
     Indication: DRUG USE FOR UNKNOWN INDICATION
     Route: 048
  8. PLAVIX [Concomitant]
     Indication: DRUG USE FOR UNKNOWN INDICATION
     Route: 048
  9. LOPRESSOR [Concomitant]
     Indication: DRUG USE FOR UNKNOWN INDICATION
     Route: 048
  10. PRAVACHOL [Concomitant]
     Indication: DRUG USE FOR UNKNOWN INDICATION
     Route: 048
  11. LASIX [Concomitant]
     Indication: DRUG USE FOR UNKNOWN INDICATION
     Route: 048
  12. K-DUR 10 [Concomitant]
     Indication: DRUG USE FOR UNKNOWN INDICATION
     Route: 048
  13. AMIODARONE HCL [Concomitant]
     Indication: DRUG USE FOR UNKNOWN INDICATION
     Route: 048
  14. AMIODARONE HCL [Concomitant]
     Route: 048
  15. PERCOCET [Concomitant]
     Indication: PAIN
     Route: 048
  16. NITROGLYCERIN [Concomitant]
     Indication: CHEST PAIN
     Dosage: DOSE UNIT:UNKNOWN
     Route: 065

REACTIONS (1)
  - HYPOTENSION [None]
